FAERS Safety Report 8318362-1 (Version None)
Quarter: 2012Q2

REPORT INFORMATION
  Report Type: 
  Country: None (occurrence: None)
  Receive Date: 20120425
  Receipt Date: 20120410
  Transmission Date: 20120825
  Serious: Yes (Life-Threatening, Hospitalization)
  Sender: FDA-Public Use
  Company Number: 2012MA004820

PATIENT
  Age: 60 Year
  Sex: Male

DRUGS (7)
  1. CO-DYDRAMOL (PARAMOL-118) [Suspect]
     Dates: start: 20120320, end: 20120321
  2. AMLODIPINE [Concomitant]
  3. RAMIPRIL CAPSULE, 10MG (AELLC) (RAMIPRIL) [Suspect]
     Dates: end: 20120321
  4. IBUPROFEN [Suspect]
  5. CLOPIDOGREL [Concomitant]
  6. OMEPRAZOLE [Concomitant]
  7. SIMVASTATIN [Concomitant]

REACTIONS (4)
  - LOSS OF CONSCIOUSNESS [None]
  - SWOLLEN TONGUE [None]
  - LIP SWELLING [None]
  - LARYNGEAL OEDEMA [None]
